FAERS Safety Report 20035957 (Version 1)
Quarter: 2021Q4

REPORT INFORMATION
  Report Type: Spontaneous
  Country: JP (occurrence: JP)
  Receive Date: 20211105
  Receipt Date: 20211105
  Transmission Date: 20220303
  Serious: Yes (Death, Other)
  Sender: FDA-Public Use
  Company Number: JP-KYOWAKIRIN-2021AKK018607

PATIENT
  Age: 9 Decade
  Sex: Male

DRUGS (3)
  1. DARBEPOETIN ALFA [Suspect]
     Active Substance: DARBEPOETIN ALFA
     Indication: Product used for unknown indication
     Dosage: UNK
     Route: 065
  2. DAPRODUSTAT [Suspect]
     Active Substance: DAPRODUSTAT
     Indication: Product used for unknown indication
     Dosage: 4 MILLIGRAM
     Route: 048
  3. DAPRODUSTAT [Suspect]
     Active Substance: DAPRODUSTAT
     Dosage: 8 MILLIGRAM
     Route: 048
     Dates: start: 20210105, end: 20210930

REACTIONS (1)
  - Disseminated intravascular coagulation [Fatal]

NARRATIVE: CASE EVENT DATE: 20211015
